FAERS Safety Report 4928587-0 (Version None)
Quarter: 2006Q1

REPORT INFORMATION
  Report Type: 
  Country: None (occurrence: None)
  Receive Date: 20060223
  Receipt Date: 20060203
  Transmission Date: 20060701
  Serious: Yes (Other)
  Sender: FDA-Public Use
  Company Number: US200602001216

PATIENT
  Age: 54 Year
  Sex: Female

DRUGS (1)
  1. HUMULIN N [Suspect]
     Dates: start: 20040101

REACTIONS (1)
  - BLINDNESS [None]
